FAERS Safety Report 13145404 (Version 25)
Quarter: 2025Q1

REPORT INFORMATION
  Report Type: Spontaneous
  Country: US (occurrence: US)
  Receive Date: 20170124
  Receipt Date: 20250305
  Transmission Date: 20250408
  Serious: No
  Sender: PFIZER
  Company Number: US-PFIZER INC-2017029857

PATIENT
  Age: 64 Year
  Sex: Female

DRUGS (13)
  1. XELJANZ XR [Suspect]
     Active Substance: TOFACITINIB CITRATE
     Indication: Rheumatoid arthritis
     Dates: end: 2017
  2. XELJANZ XR [Suspect]
     Active Substance: TOFACITINIB CITRATE
  3. XELJANZ XR [Suspect]
     Active Substance: TOFACITINIB CITRATE
     Dosage: 11 MG, 1X/DAY
  4. IODINE [Concomitant]
     Active Substance: IODINE
  5. ALBUTEROL [Concomitant]
     Active Substance: ALBUTEROL
  6. ECONAZOLE [Concomitant]
     Active Substance: ECONAZOLE
  7. FOLIC ACID [Concomitant]
     Active Substance: FOLIC ACID
  8. METHOTREXATE [Concomitant]
     Active Substance: METHOTREXATE
  9. POTASSIUM [Concomitant]
     Active Substance: POTASSIUM
  10. TRAMADOL [Concomitant]
     Active Substance: TRAMADOL
  11. VITAMIN D NOS [Concomitant]
     Active Substance: CHOLECALCIFEROL\ERGOCALCIFEROL
  12. VITAMIN B12 [Concomitant]
     Active Substance: CYANOCOBALAMIN
  13. ZINC [Concomitant]
     Active Substance: ZINC

REACTIONS (18)
  - Asthma [Not Recovered/Not Resolved]
  - Fatigue [Unknown]
  - Malaise [Unknown]
  - Nasopharyngitis [Unknown]
  - Sleep apnoea syndrome [Unknown]
  - Thyroid cyst [Unknown]
  - Insomnia [Unknown]
  - Pain [Unknown]
  - Nausea [Unknown]
  - Decreased appetite [Unknown]
  - Fibromyalgia [Unknown]
  - Osteoarthritis [Unknown]
  - Ear congestion [Unknown]
  - Hypoacusis [Unknown]
  - Pain in extremity [Unknown]
  - Gait disturbance [Unknown]
  - Illness [Unknown]
  - Feeling abnormal [Unknown]
